FAERS Safety Report 18856707 (Version 2)
Quarter: 2021Q4

REPORT INFORMATION
  Report Type: Spontaneous
  Country: US (occurrence: US)
  Receive Date: 20210207
  Receipt Date: 20211214
  Transmission Date: 20220304
  Serious: Yes (Other)
  Sender: FDA-Public Use
  Company Number: US-TAKEDA-2021TUS007390

PATIENT

DRUGS (19)
  1. PREVACID [Suspect]
     Active Substance: LANSOPRAZOLE
     Indication: Gastrooesophageal reflux disease
     Dosage: UNK
     Route: 048
     Dates: start: 2002, end: 2012
  2. PREVACID [Suspect]
     Active Substance: LANSOPRAZOLE
     Dosage: 30 MILLIGRAM, QD
     Route: 048
     Dates: start: 2002, end: 2005
  3. NEXIUM [Suspect]
     Active Substance: ESOMEPRAZOLE MAGNESIUM
     Indication: Gastrooesophageal reflux disease
     Dosage: UNK
     Route: 048
     Dates: start: 2002, end: 2018
  4. NEXIUM [Suspect]
     Active Substance: ESOMEPRAZOLE MAGNESIUM
     Dosage: 40 MILLIGRAM, QD
     Route: 048
     Dates: start: 2005, end: 2012
  5. ESOMEPRAZOLE [Suspect]
     Active Substance: ESOMEPRAZOLE
     Indication: Gastrooesophageal reflux disease
     Dosage: 40 MILLIGRAM, QD
     Route: 048
     Dates: start: 2013, end: 2014
  6. OMEPRAZOLE [Suspect]
     Active Substance: OMEPRAZOLE
     Indication: Gastrooesophageal reflux disease
     Dosage: 40 MILLIGRAM, QD
     Route: 048
     Dates: start: 2014
  7. ZEGERID [Suspect]
     Active Substance: OMEPRAZOLE\SODIUM BICARBONATE
     Indication: Gastrooesophageal reflux disease
     Dosage: UNK
     Route: 048
     Dates: start: 2015
  8. OMEPRAZOLE AND SODIUM BICARBONATE [Suspect]
     Active Substance: OMEPRAZOLE\SODIUM BICARBONATE
     Indication: Gastrooesophageal reflux disease
     Dosage: 40 MILLIGRAM, QD
     Route: 048
     Dates: start: 2015
  9. ALLOPURINOL [Concomitant]
     Active Substance: ALLOPURINOL
     Indication: Gout
     Dosage: UNK
     Dates: start: 2015
  10. COLCRYS [Concomitant]
     Active Substance: COLCHICINE
     Indication: Gout
     Dosage: UNK
     Dates: start: 2015
  11. CALCITRIOL [Concomitant]
     Active Substance: CALCITRIOL
     Indication: Chronic kidney disease
     Dosage: UNK
     Dates: start: 2015
  12. MAGNESIUM [Concomitant]
     Active Substance: MAGNESIUM
     Indication: Chronic kidney disease
     Dosage: UNK
     Dates: start: 2015
  13. MAGNESIUM [Concomitant]
     Active Substance: MAGNESIUM
     Indication: Magnesium deficiency
     Dosage: UNK
     Dates: start: 2016
  14. GENTAMICIN [Concomitant]
     Active Substance: GENTAMICIN
     Indication: Chronic kidney disease
     Dosage: UNK
     Dates: start: 2015
  15. EPOGEN [Concomitant]
     Active Substance: ERYTHROPOIETIN
     Indication: Chronic kidney disease
     Dosage: UNK
     Dates: start: 2015
  16. METOPROLOL [Concomitant]
     Active Substance: METOPROLOL
     Indication: Chronic kidney disease
     Dosage: UNK
     Dates: start: 2015
  17. GABAPENTIN [Concomitant]
     Active Substance: GABAPENTIN
     Indication: Neuropathy peripheral
     Dosage: UNK
     Dates: start: 2015
  18. LISINOPRIL [Concomitant]
     Active Substance: LISINOPRIL
     Indication: Blood pressure abnormal
     Dosage: UNK
     Dates: start: 2015
  19. ASPIRIN [Concomitant]
     Active Substance: ASPIRIN
     Indication: Cardiac disorder
     Dosage: UNK
     Dates: start: 2020

REACTIONS (3)
  - Chronic kidney disease [Not Recovered/Not Resolved]
  - End stage renal disease [Not Recovered/Not Resolved]
  - Renal failure [Unknown]

NARRATIVE: CASE EVENT DATE: 20130101
